FAERS Safety Report 4970991-9 (Version None)
Quarter: 2006Q2

REPORT INFORMATION
  Report Type: 
  Country: None (occurrence: None)
  Receive Date: 20060412
  Receipt Date: 20060407
  Transmission Date: 20061013
  Serious: Yes (Life-Threatening, Hospitalization)
  Sender: FDA-Public Use
  Company Number: 2006UW06278

PATIENT
  Age: 50 Year
  Sex: Female
  Weight: 54.4 kg

DRUGS (7)
  1. NEXIUM [Suspect]
     Indication: ULCER
     Route: 048
  2. NEXIUM [Suspect]
     Route: 048
     Dates: start: 20060301
  3. CARAFATE [Concomitant]
  4. PREVPAC [Concomitant]
     Dates: start: 20060301
  5. ZELNORM [Concomitant]
  6. VANCOMYCIN [Concomitant]
  7. HYDROCHLOROTHIAZIDE [Concomitant]

REACTIONS (6)
  - DIFFICULTY IN WALKING [None]
  - MOVEMENT DISORDER [None]
  - PSYCHOMOTOR SKILLS IMPAIRED [None]
  - RESPIRATORY ARREST [None]
  - TONGUE DISORDER [None]
  - TREMOR [None]
